FAERS Safety Report 13930101 (Version 3)
Quarter: 2020Q3

REPORT INFORMATION
  Report Type: Report from Study
  Country: PL (occurrence: PL)
  Receive Date: 20170901
  Receipt Date: 20180117
  Transmission Date: 20201104
  Serious: Yes (Death, Other)
  Sender: FDA-Public Use
  Company Number: PL-ASTRAZENECA-2016SE54838

PATIENT
  Age: 27597 Day
  Sex: Female

DRUGS (8)
  1. GLUCOSE [Concomitant]
     Active Substance: DEXTROSE
     Indication: DEHYDRATION
     Dosage: 500.0ML ONCE/SINGLE ADMINISTRATION
     Route: 065
     Dates: start: 20160428, end: 20160504
  2. NACL [Concomitant]
     Active Substance: SODIUM CHLORIDE
     Indication: DEHYDRATION
     Dosage: 500.0ML ONCE/SINGLE ADMINISTRATION
     Route: 065
     Dates: start: 20160428, end: 20160504
  3. TREMELIMUMAB. [Suspect]
     Active Substance: TREMELIMUMAB
     Indication: BLADDER TRANSITIONAL CELL CARCINOMA STAGE IV
     Route: 042
     Dates: start: 20160401, end: 20160401
  4. MILURIT [Concomitant]
     Active Substance: ALLOPURINOL
     Indication: HYPERURICAEMIA
     Dosage: 300.0MG UNKNOWN
     Route: 048
     Dates: start: 20160401
  5. FURAGIN [AKRITOIN] [Concomitant]
     Active Substance: FURAZIDINE
     Indication: INFECTION
     Route: 048
     Dates: start: 20160401, end: 20160505
  6. MEDI4736 [Suspect]
     Active Substance: DURVALUMAB
     Indication: BLADDER TRANSITIONAL CELL CARCINOMA STAGE IV
     Route: 042
     Dates: start: 20160401, end: 20160401
  7. FUROSEMIDE. [Concomitant]
     Active Substance: FUROSEMIDE
     Indication: HYPERURICAEMIA
     Route: 048
     Dates: start: 20160401
  8. ESCITALOPRAM [Concomitant]
     Active Substance: ESCITALOPRAM OXALATE
     Indication: ANTIDEPRESSANT THERAPY
     Route: 048
     Dates: start: 20160504

REACTIONS (3)
  - Alanine aminotransferase increased [Not Recovered/Not Resolved]
  - Aspartate aminotransferase increased [Not Recovered/Not Resolved]
  - Multiple organ dysfunction syndrome [Fatal]

NARRATIVE: CASE EVENT DATE: 20160505
